FAERS Safety Report 7512383-4 (Version None)
Quarter: 2011Q2

REPORT INFORMATION
  Report Type: 
  Country: None (occurrence: None)
  Receive Date: 20110531
  Receipt Date: 20110519
  Transmission Date: 20111010
  Serious: Yes (Hospitalization)
  Sender: FDA-Public Use
  Company Number: JP-ROCHE-758894

PATIENT
  Sex: Female
  Weight: 35 kg

DRUGS (20)
  1. PREDNISOLONE [Concomitant]
     Route: 048
     Dates: start: 20110217
  2. FERROUS CITRATE [Concomitant]
     Route: 048
     Dates: start: 20090319
  3. CELECOXIB [Concomitant]
     Route: 048
  4. ACETAMINOPHEN [Concomitant]
     Route: 048
  5. ACTEMRA [Suspect]
     Dosage: ONCE EVERY 4-6 WEEKS
     Route: 041
     Dates: start: 20100202, end: 20110125
  6. THYRADIN [Concomitant]
     Route: 048
     Dates: start: 20081028
  7. MAGNESIUM OXIDE [Concomitant]
     Route: 048
     Dates: start: 20081028
  8. URSO 250 [Concomitant]
     Route: 048
     Dates: start: 20100525
  9. CALFINA [Concomitant]
     Route: 048
     Dates: start: 20081028, end: 20110216
  10. LIVALO [Concomitant]
     Route: 048
     Dates: start: 20091224
  11. GLYCYRON [Concomitant]
     Route: 048
     Dates: start: 20100525
  12. RABEPRAZOLE SODIUM [Concomitant]
     Route: 048
     Dates: start: 20081028
  13. PROMAC [Concomitant]
     Route: 048
     Dates: start: 20090129
  14. PREDNISOLONE [Concomitant]
     Route: 048
     Dates: start: 20090903, end: 20110206
  15. MUCOSOL [Concomitant]
     Route: 048
     Dates: start: 20081125
  16. ACTEMRA [Suspect]
     Dosage: DOSAGE WAS UNCERTAIN.
     Route: 041
  17. ACTEMRA [Suspect]
     Dosage: INJECTION
     Route: 041
     Dates: start: 20081028, end: 20091224
  18. ACTONEL [Concomitant]
     Route: 048
     Dates: start: 20101125, end: 20110216
  19. CLARITHROMYCIN [Concomitant]
     Route: 048
     Dates: start: 20081125
  20. GANATON [Concomitant]
     Route: 048
     Dates: start: 20081028

REACTIONS (2)
  - GASTRITIS [None]
  - DISSEMINATED INTRAVASCULAR COAGULATION [None]
